FAERS Safety Report 7221217-7 (Version None)
Quarter: 2011Q1

REPORT INFORMATION
  Report Type: 
  Country: None (occurrence: None)
  Receive Date: 20110112
  Receipt Date: 20110107
  Transmission Date: 20110831
  Serious: Yes (Death, Hospitalization)
  Sender: FDA-Public Use
  Company Number: DE-CELGENEUS-062-21880-10110494

PATIENT
  Age: 74 Year
  Sex: Male
  Weight: 75 kg

DRUGS (4)
  1. ACYCLOVIR [Concomitant]
     Route: 065
  2. FERRIN [Concomitant]
     Route: 050
  3. INTRATECT [Concomitant]
     Route: 065
  4. REVLIMID [Suspect]
     Indication: MULTIPLE MYELOMA
     Route: 048
     Dates: start: 20101028

REACTIONS (5)
  - MULTI-ORGAN FAILURE [None]
  - UROSEPSIS [None]
  - GENERAL PHYSICAL HEALTH DETERIORATION [None]
  - FEBRILE INFECTION [None]
  - GASTROINTESTINAL HAEMORRHAGE [None]
